FAERS Safety Report 6398023-9 (Version None)
Quarter: 2009Q4

REPORT INFORMATION
  Report Type: 
  Country: None (occurrence: None)
  Receive Date: 20091013
  Receipt Date: 20091005
  Transmission Date: 20100525
  Serious: Yes (Hospitalization, Other)
  Sender: FDA-Public Use
  Company Number: US-JNJFOC-20091001759

PATIENT
  Sex: Female
  Weight: 53.07 kg

DRUGS (13)
  1. FENTANYL TRANSDERMAL SYSTEM [Suspect]
     Indication: BACK PAIN
     Dosage: NDC # 0781-7111-55
     Route: 062
  2. OXYCONTIN [Concomitant]
     Indication: PAIN
     Dosage: 5/325 EVERY 6 HOURS AS NEEDED
     Route: 048
  3. LOTENSIN [Concomitant]
     Dosage: HALF TABLET AT NIGHT
     Route: 048
  4. LOTENSIN [Concomitant]
     Indication: BLOOD PRESSURE
     Dosage: ONE TABLET IN THE MORNING
     Route: 048
  5. SOTALOL [Concomitant]
     Dosage: HALF TABLET AT NIGHT
     Route: 048
  6. SOTALOL [Concomitant]
     Indication: CARDIAC DISORDER
     Dosage: ONE IN THE MORNING
     Route: 048
  7. PREMARIN [Concomitant]
     Indication: OESTROGEN THERAPY
     Dosage: 1 EVERY OTHER DAY
     Route: 048
  8. HYDROCHLOROTHIAZIDE [Concomitant]
     Indication: BLOOD PRESSURE
     Route: 048
  9. LANOXIN [Concomitant]
     Indication: CARDIAC DISORDER
     Route: 048
  10. CLONAZEPAM [Concomitant]
     Indication: NEUROPATHY PERIPHERAL
     Dosage: NIGHTLY
     Route: 048
  11. POTASSIUM CHLORIDE [Concomitant]
     Dosage: 10.0 MEQ 1 TABLET IN THE EVENING
     Route: 048
  12. POTASSIUM CHLORIDE [Concomitant]
     Indication: MINERAL SUPPLEMENTATION
     Dosage: 10.0 MEQ 2 TABLETS IN THE MORNING
     Route: 048
  13. FOSAMAX [Concomitant]
     Indication: ARTHRITIS
     Route: 048

REACTIONS (7)
  - CARDIAC FAILURE CONGESTIVE [None]
  - CATARACT [None]
  - FATIGUE [None]
  - GASTROOESOPHAGEAL REFLUX DISEASE [None]
  - HEART RATE DECREASED [None]
  - NERVOUSNESS [None]
  - VISION BLURRED [None]
